FAERS Safety Report 16942000 (Version 2)
Quarter: 2019Q4

REPORT INFORMATION
  Report Type: Spontaneous
  Country: US (occurrence: US)
  Receive Date: 20191021
  Receipt Date: 20191030
  Transmission Date: 20200122
  Serious: Yes (Hospitalization)
  Sender: FDA-Public Use
  Company Number: US-MYLANLABS-2019M1098154

PATIENT
  Age: 70 Year
  Sex: Female
  Weight: 73 kg

DRUGS (2)
  1. ALBUTEROL SULFATE INHALATION SOLUTION [Suspect]
     Active Substance: ALBUTEROL SULFATE
     Indication: ASTHMA
     Dosage: FIVE TIMES AS NEEDED PER DAY
     Route: 055
     Dates: start: 201801
  2. 0.02% IPRATROPIUM BROMIDE INHALATION SOLUTION [Suspect]
     Active Substance: IPRATROPIUM BROMIDE
     Indication: ASTHMA
     Dosage: FIVE TIMES AS NEEDED PER DAY
     Route: 055
     Dates: start: 201801

REACTIONS (4)
  - Palpitations [Recovered/Resolved]
  - Incorrect dose administered [Unknown]
  - Product label issue [Unknown]
  - Asthma [Not Recovered/Not Resolved]

NARRATIVE: CASE EVENT DATE: 20191013
